FAERS Safety Report 21913259 (Version 8)
Quarter: 2023Q1

REPORT INFORMATION
  Report Type: Report from Study
  Country: SE (occurrence: SE)
  Receive Date: 20230125
  Receipt Date: 20230321
  Transmission Date: 20230417
  Serious: Yes (Hospitalization)
  Sender: FDA-Public Use
  Company Number: SE-ABBVIE-4280329

PATIENT
  Age: 52 Year
  Sex: Female

DRUGS (20)
  1. CARBIDOPA\LEVODOPA [Suspect]
     Active Substance: CARBIDOPA\LEVODOPA
     Indication: Parkinson^s disease
     Route: 050
  2. CARBIDOPA\LEVODOPA [Suspect]
     Active Substance: CARBIDOPA\LEVODOPA
     Dosage: 0.5 ML EXTRA DOSE GIVEN AT 11:20 AM. EXTRA DOSE GIVEN AFTER 3 PM AND AT 4 PM.?LAST ADMIN DATE: FE...
     Route: 050
     Dates: start: 20230221
  3. CARBIDOPA\LEVODOPA [Suspect]
     Active Substance: CARBIDOPA\LEVODOPA
     Dosage: EXTRA DOSE INCREASED FROM 0.5 ML TO 0.8 ML.
     Dates: start: 20230224
  4. CARBIDOPA\LEVODOPA [Suspect]
     Active Substance: CARBIDOPA\LEVODOPA
     Dosage: 17.00: CONTINUOUS DOSE INCREASED TO 2.8 ML/H, THERAPY DURATION: REMAINS AT 16H, EXTRA DOSE INCREA...
     Route: 050
     Dates: start: 20230223, end: 20230223
  5. CARBIDOPA\LEVODOPA [Suspect]
     Active Substance: CARBIDOPA\LEVODOPA
     Dosage: 17.00: CONTINUOUS DOSE INCREASED TO 2.8 ML/H.
     Dates: start: 20230223
  6. CARBIDOPA\LEVODOPA [Suspect]
     Active Substance: CARBIDOPA\LEVODOPA
     Dosage: EXTRA DOSE FROM 07:50 AM, A TOTAL OF 2.5ML WITHIN 60 MINUTES.
     Route: 050
     Dates: start: 20230222
  7. CARBIDOPA\LEVODOPA [Suspect]
     Active Substance: CARBIDOPA\LEVODOPA
     Dosage: MORNING DOSE DECREASED TO 7ML, EXTRA DOSE INCREASED FROM 0.5 ML TO 0.8 ML.,
     Route: 050
     Dates: start: 20230224, end: 20230224
  8. CARBIDOPA\LEVODOPA [Suspect]
     Active Substance: CARBIDOPA\LEVODOPA
     Dosage: CURRENT DOSAGE: CONTINUOUS DOSE 3.2 ML, EXTRA DOSE 1.2 ML, MORNING DOSE 6 ML.
     Route: 050
     Dates: start: 20230228
  9. CARBIDOPA\LEVODOPA [Suspect]
     Active Substance: CARBIDOPA\LEVODOPA
     Dosage: 11 AM DOSE INCREASED TO 2.4ML/H. 13 AM DOSE INCREASED TO 2.5 ML/H.?LAST ADMIN DATE: FEB 2023
     Route: 050
     Dates: start: 20230222
  10. CARBIDOPA\LEVODOPA [Suspect]
     Active Substance: CARBIDOPA\LEVODOPA
     Dosage: CONTINUOUS DOSE INCREASED TO 3 ML/H.
     Route: 050
     Dates: start: 20230228
  11. CARBIDOPA\LEVODOPA [Suspect]
     Active Substance: CARBIDOPA\LEVODOPA
     Dosage: DOSE INCREASED TO 2.3 ML/H.
     Dates: start: 20230221
  12. CARBIDOPA\LEVODOPA [Suspect]
     Active Substance: CARBIDOPA\LEVODOPA
     Route: 050
     Dates: start: 20170117, end: 20170123
  13. CARBIDOPA\LEVODOPA [Suspect]
     Active Substance: CARBIDOPA\LEVODOPA
     Dosage: EXTRA DOSE FROM 07:50 AM, A TOTAL OF 2.5ML WITHIN 60 MINUTES. 11 AM DOSE INCREASED TO 2.4ML/H. 13...
     Route: 050
     Dates: start: 20230222, end: 20230222
  14. CARBIDOPA\LEVODOPA [Suspect]
     Active Substance: CARBIDOPA\LEVODOPA
     Dosage: 17.00: DOSE INCREASED TO 2.8 ML/H.
     Route: 050
     Dates: start: 20230223
  15. CARBIDOPA\LEVODOPA [Suspect]
     Active Substance: CARBIDOPA\LEVODOPA
     Dosage: 11 AM DOSE INCREASED TO 2.4ML/H. 13 AM DOSE INCREASED TO 2.5 ML/H.
     Dates: start: 20230222
  16. CARBIDOPA\LEVODOPA [Suspect]
     Active Substance: CARBIDOPA\LEVODOPA
     Dosage: EXTRA DOSE INCREASED. EXTRA DOSE IN FORENOON, AT 17.00, TWICE AT 18.00.
     Route: 050
     Dates: start: 20230223
  17. CARBIDOPA\LEVODOPA [Suspect]
     Active Substance: CARBIDOPA\LEVODOPA
     Dosage: EXTRA DOSE 1 ML IN THE AFTERNOON, 0.5 ML IN ADDITION.
     Route: 050
     Dates: start: 20230228
  18. CARBIDOPA\LEVODOPA [Suspect]
     Active Substance: CARBIDOPA\LEVODOPA
     Dosage: EXTRA DOSE AT 07:30 AM AND 1.2 ML IN THE MORNING. CONTINUOUS DOSE INCREASED TO 3.3 ML/H
     Route: 050
     Dates: start: 20230302
  19. CARBIDOPA\LEVODOPA [Suspect]
     Active Substance: CARBIDOPA\LEVODOPA
     Dosage: 12.30 PM: CONTINUOUS DOSE DECREASED TO 3.2 ML/H.
     Dates: start: 20230302
  20. OXYCODONE HYDROCHLORIDE [Concomitant]
     Active Substance: OXYCODONE HYDROCHLORIDE
     Indication: Product used for unknown indication

REACTIONS (16)
  - Dehydration [Recovered/Resolved]
  - Gastroenteritis viral [Not Recovered/Not Resolved]
  - Cognitive disorder [Unknown]
  - Dysphagia [Unknown]
  - Hypophagia [Recovering/Resolving]
  - Fall [Unknown]
  - Pyrexia [Recovered/Resolved]
  - Blood creatinine increased [Unknown]
  - Blood sodium increased [Unknown]
  - General physical health deterioration [Unknown]
  - Bedridden [Unknown]
  - Vomiting [Recovering/Resolving]
  - Hyperkinesia [Recovering/Resolving]
  - Dehydration [Unknown]
  - Dysphagia [Unknown]
  - Enteral nutrition [Not Recovered/Not Resolved]

NARRATIVE: CASE EVENT DATE: 20221227
